FAERS Safety Report 9638625 (Version 2)
Quarter: 2014Q1

REPORT INFORMATION
  Report Type: Spontaneous
  Country: US (occurrence: US)
  Receive Date: 20131022
  Receipt Date: 20140122
  Transmission Date: 20141002
  Serious: No
  Sender: FDA-Public Use
  Company Number: US-BRISTOL-MYERS SQUIBB COMPANY-19431550

PATIENT
  Age: 74 Year
  Sex: Female

DRUGS (8)
  1. ELIQUIS [Suspect]
     Indication: ATRIAL FIBRILLATION
     Route: 048
     Dates: start: 20130912, end: 20130917
  2. ALLOPURINOL [Suspect]
  3. LIPITOR [Concomitant]
  4. CAPTOPRIL [Concomitant]
  5. DIGOXIN [Concomitant]
  6. METFORMIN [Concomitant]
  7. TOPROL [Concomitant]
  8. GLYBURIDE [Concomitant]

REACTIONS (1)
  - Gout [Recovered/Resolved]
